FAERS Safety Report 7770218-9 (Version None)
Quarter: 2011Q3

REPORT INFORMATION
  Report Type: 
  Country: None (occurrence: None)
  Receive Date: 20110922
  Receipt Date: 20100928
  Transmission Date: 20111222
  Serious: No
  Sender: FDA-Public Use
  Company Number: US-ASTRAZENECA-2010SE45721

PATIENT
  Sex: Male
  Weight: 83.9 kg

DRUGS (6)
  1. SEROQUEL [Suspect]
     Indication: DEPRESSION
     Route: 048
  2. SEROQUEL [Suspect]
     Indication: ANGER
     Route: 048
  3. SEROQUEL [Suspect]
     Route: 048
  4. ZYPREXA ZYDIS [Concomitant]
  5. SEROQUEL [Suspect]
     Route: 048
  6. DEPAKOTE [Concomitant]

REACTIONS (8)
  - ANGER [None]
  - SOMNOLENCE [None]
  - DRUG INEFFECTIVE FOR UNAPPROVED INDICATION [None]
  - FEELING ABNORMAL [None]
  - FEELING DRUNK [None]
  - AGGRESSION [None]
  - CONFUSIONAL STATE [None]
  - VISUAL ACUITY REDUCED [None]
